FAERS Safety Report 8349977 (Version 3)
Quarter: 2018Q1

REPORT INFORMATION
  Report Type: Report from Study
  Country: JP (occurrence: JP)
  Receive Date: 20120123
  Receipt Date: 20180219
  Transmission Date: 20180509
  Serious: Yes (Death, Other)
  Sender: FDA-Public Use
  Company Number: JP-ROCHE-768018

PATIENT

DRUGS (5)
  1. DOXORUBICIN [Suspect]
     Active Substance: DOXORUBICIN
     Indication: B-CELL LYMPHOMA
     Route: 065
  2. RITUXIMAB. [Suspect]
     Active Substance: RITUXIMAB
     Indication: B-CELL LYMPHOMA
     Route: 065
  3. VINCRISTINE [Suspect]
     Active Substance: VINCRISTINE
     Indication: B-CELL LYMPHOMA
     Route: 042
  4. CYCLOPHOSPHAMIDE. [Suspect]
     Active Substance: CYCLOPHOSPHAMIDE
     Indication: B-CELL LYMPHOMA
     Route: 065
  5. PREDNISONE. [Suspect]
     Active Substance: PREDNISONE
     Indication: B-CELL LYMPHOMA
     Route: 048

REACTIONS (32)
  - Colon cancer [Fatal]
  - Alanine aminotransferase abnormal [Unknown]
  - Hepatic cirrhosis [Fatal]
  - Acute myeloid leukaemia [Fatal]
  - Nausea [Unknown]
  - Pneumocystis jirovecii pneumonia [Unknown]
  - Arrhythmia supraventricular [Unknown]
  - Infection [Unknown]
  - Dyspnoea [Unknown]
  - Hepatitis B reactivation [Fatal]
  - Hyponatraemia [Unknown]
  - Pyrexia [Unknown]
  - Neuropathy peripheral [Unknown]
  - Decreased appetite [Unknown]
  - Diarrhoea [Unknown]
  - Stomatitis [Unknown]
  - Febrile neutropenia [Unknown]
  - Neutropenic infection [Unknown]
  - Haemoglobin decreased [Unknown]
  - Aspartate aminotransferase abnormal [Unknown]
  - Hypocalcaemia [Unknown]
  - Vomiting [Unknown]
  - Haematuria [Unknown]
  - Thrombocytopenia [Unknown]
  - Hyperglycaemia [Unknown]
  - Constipation [Unknown]
  - Ileus [Unknown]
  - Pharyngitis [Unknown]
  - Acute lymphocytic leukaemia [Fatal]
  - Neutropenia [Unknown]
  - Hypokalaemia [Unknown]
  - Myelodysplastic syndrome [Unknown]
